FAERS Safety Report 15300435 (Version 1)
Quarter: 2018Q3

REPORT INFORMATION
  Report Type: Spontaneous
  Country: TW (occurrence: TW)
  Receive Date: 20180821
  Receipt Date: 20180821
  Transmission Date: 20181010
  Serious: Yes (Other)
  Sender: FDA-Public Use
  Company Number: TW-ROCHE-2171331

PATIENT
  Age: 42 Year
  Sex: Male
  Weight: 55 kg

DRUGS (5)
  1. ANTI?THYMOCYTE GLOBULIN (EQUINE) [Concomitant]
     Active Substance: EQUINE THYMOCYTE IMMUNE GLOBULIN
     Route: 065
     Dates: start: 20180506, end: 20180506
  2. TACROLIMUS. [Concomitant]
     Active Substance: TACROLIMUS
     Route: 065
     Dates: start: 201804
  3. ANTI?THYMOCYTE GLOBULIN (EQUINE) [Concomitant]
     Active Substance: EQUINE THYMOCYTE IMMUNE GLOBULIN
     Route: 065
     Dates: start: 20180418, end: 20180418
  4. ANTI?THYMOCYTE GLOBULIN (EQUINE) [Concomitant]
     Active Substance: EQUINE THYMOCYTE IMMUNE GLOBULIN
     Route: 065
     Dates: start: 20180421, end: 20180421
  5. MYCOPHENOLATE MOFETIL. [Suspect]
     Active Substance: MYCOPHENOLATE MOFETIL
     Indication: PROPHYLAXIS AGAINST TRANSPLANT REJECTION
     Route: 065
     Dates: start: 20180417

REACTIONS (1)
  - Transplant rejection [Recovering/Resolving]

NARRATIVE: CASE EVENT DATE: 20180426
